FAERS Safety Report 24064620 (Version 20)
Quarter: 2025Q1

REPORT INFORMATION
  Report Type: Spontaneous
  Country: CA (occurrence: CA)
  Receive Date: 20240709
  Receipt Date: 20250326
  Transmission Date: 20250409
  Serious: Yes (Death, Life-Threatening, Hospitalization, Disabling, Other)
  Sender: PFIZER
  Company Number: CA-AMGEN-CANSP2024124010

PATIENT
  Age: 44 Year
  Sex: Female
  Weight: 97 kg

DRUGS (451)
  1. ENBREL [Suspect]
     Active Substance: ETANERCEPT
     Indication: Rheumatoid arthritis
     Dosage: 20 MG, 1X/DAY
     Route: 058
  2. ENBREL [Suspect]
     Active Substance: ETANERCEPT
     Dosage: 20 MG, WEEKLY
     Route: 058
  3. ENBREL [Suspect]
     Active Substance: ETANERCEPT
     Route: 061
  4. ENBREL [Suspect]
     Active Substance: ETANERCEPT
     Route: 058
  5. ENBREL [Suspect]
     Active Substance: ETANERCEPT
     Route: 058
  6. ENBREL [Suspect]
     Active Substance: ETANERCEPT
     Route: 048
  7. ENBREL [Suspect]
     Active Substance: ETANERCEPT
     Route: 058
  8. ENBREL [Suspect]
     Active Substance: ETANERCEPT
     Route: 065
  9. ENBREL [Suspect]
     Active Substance: ETANERCEPT
     Dosage: 50 MG, WEEKLY
     Route: 058
  10. ENBREL [Suspect]
     Active Substance: ETANERCEPT
     Route: 065
  11. ENBREL [Suspect]
     Active Substance: ETANERCEPT
     Route: 065
  12. INFLIXIMAB [Suspect]
     Active Substance: INFLIXIMAB
     Indication: Rheumatoid arthritis
     Route: 042
  13. INFLIXIMAB [Suspect]
     Active Substance: INFLIXIMAB
     Indication: Colitis ulcerative
     Route: 042
  14. INFLIXIMAB [Suspect]
     Active Substance: INFLIXIMAB
     Route: 065
  15. INFLIXIMAB [Suspect]
     Active Substance: INFLIXIMAB
     Route: 065
  16. AZULFIDINE [Suspect]
     Active Substance: SULFASALAZINE
     Route: 065
  17. XELJANZ [Suspect]
     Active Substance: TOFACITINIB CITRATE
     Dosage: 5 MILLIGRAM, BID
     Route: 048
  18. XELJANZ [Suspect]
     Active Substance: TOFACITINIB CITRATE
     Route: 048
  19. XELJANZ [Suspect]
     Active Substance: TOFACITINIB CITRATE
     Dosage: 10 MILLIGRAM, BID
     Route: 048
  20. XELJANZ [Suspect]
     Active Substance: TOFACITINIB CITRATE
     Route: 048
  21. XELJANZ [Suspect]
     Active Substance: TOFACITINIB CITRATE
     Route: 065
  22. TOFACITINIB CITRATE [Suspect]
     Active Substance: TOFACITINIB CITRATE
     Indication: Rheumatoid arthritis
     Dosage: 10 MILLIGRAM, QD
     Route: 065
  23. TOFACITINIB CITRATE [Suspect]
     Active Substance: TOFACITINIB CITRATE
     Route: 065
  24. TOFACITINIB CITRATE [Suspect]
     Active Substance: TOFACITINIB CITRATE
     Route: 065
  25. TOFACITINIB CITRATE [Suspect]
     Active Substance: TOFACITINIB CITRATE
     Dosage: 10 MILLIGRAM, QWK
     Route: 065
  26. TOFACITINIB CITRATE [Suspect]
     Active Substance: TOFACITINIB CITRATE
     Dosage: 5 MILLIGRAM, QWK
     Route: 065
  27. HYDROCORTISONE SODIUM SUCCINATE [Suspect]
     Active Substance: HYDROCORTISONE SODIUM SUCCINATE
     Route: 058
  28. HYDROCORTISONE SODIUM SUCCINATE [Suspect]
     Active Substance: HYDROCORTISONE SODIUM SUCCINATE
     Route: 049
  29. HYDROCORTISONE SODIUM SUCCINATE [Suspect]
     Active Substance: HYDROCORTISONE SODIUM SUCCINATE
     Route: 058
  30. HYDROCORTISONE [Suspect]
     Active Substance: HYDROCORTISONE
     Indication: Rheumatoid arthritis
     Route: 048
  31. HYDROCORTISONE [Suspect]
     Active Substance: HYDROCORTISONE
     Route: 048
  32. HYDROCORTISONE [Suspect]
     Active Substance: HYDROCORTISONE
     Route: 065
  33. HYDROCORTISONE [Suspect]
     Active Substance: HYDROCORTISONE
     Route: 065
  34. HYDROCORTISONE [Suspect]
     Active Substance: HYDROCORTISONE
     Route: 065
  35. HYDROCORTISONE [Suspect]
     Active Substance: HYDROCORTISONE
     Route: 048
  36. METHOTREXATE SODIUM [Suspect]
     Active Substance: METHOTREXATE SODIUM
     Indication: Rheumatoid arthritis
     Route: 065
  37. METHOTREXATE SODIUM [Suspect]
     Active Substance: METHOTREXATE SODIUM
     Dosage: 25 MILLIGRAM, QD
     Route: 048
  38. METHOTREXATE SODIUM [Suspect]
     Active Substance: METHOTREXATE SODIUM
     Route: 042
  39. METHOTREXATE SODIUM [Suspect]
     Active Substance: METHOTREXATE SODIUM
     Route: 048
  40. METHOTREXATE SODIUM [Suspect]
     Active Substance: METHOTREXATE SODIUM
     Route: 048
  41. METHOTREXATE SODIUM [Suspect]
     Active Substance: METHOTREXATE SODIUM
     Route: 058
  42. METHOTREXATE SODIUM [Suspect]
     Active Substance: METHOTREXATE SODIUM
     Dosage: 20 MILLIGRAM, QWK
     Route: 048
  43. METHOTREXATE SODIUM [Suspect]
     Active Substance: METHOTREXATE SODIUM
     Route: 048
  44. METHOTREXATE SODIUM [Suspect]
     Active Substance: METHOTREXATE SODIUM
     Route: 048
  45. METHOTREXATE SODIUM [Suspect]
     Active Substance: METHOTREXATE SODIUM
     Route: 048
  46. METHOTREXATE SODIUM [Suspect]
     Active Substance: METHOTREXATE SODIUM
     Route: 013
  47. METHOTREXATE SODIUM [Suspect]
     Active Substance: METHOTREXATE SODIUM
     Dosage: 15 MG, 1X/DAY
     Route: 048
  48. METHOTREXATE SODIUM [Suspect]
     Active Substance: METHOTREXATE SODIUM
     Route: 048
  49. METHOTREXATE SODIUM [Suspect]
     Active Substance: METHOTREXATE SODIUM
     Dosage: 20 MG, 1X/DAY
     Route: 058
  50. METHOTREXATE SODIUM [Suspect]
     Active Substance: METHOTREXATE SODIUM
     Route: 016
  51. METHOTREXATE SODIUM [Suspect]
     Active Substance: METHOTREXATE SODIUM
     Route: 065
  52. METHOTREXATE SODIUM [Suspect]
     Active Substance: METHOTREXATE SODIUM
     Route: 048
  53. METHOTREXATE SODIUM [Suspect]
     Active Substance: METHOTREXATE SODIUM
     Route: 058
  54. METHOTREXATE SODIUM [Suspect]
     Active Substance: METHOTREXATE SODIUM
     Route: 013
  55. METHOTREXATE SODIUM [Suspect]
     Active Substance: METHOTREXATE SODIUM
     Dosage: 20 UNK
     Route: 065
  56. METHOTREXATE SODIUM [Suspect]
     Active Substance: METHOTREXATE SODIUM
     Dosage: 25 MG
     Route: 013
  57. METHOTREXATE SODIUM [Suspect]
     Active Substance: METHOTREXATE SODIUM
     Dosage: 20 MG
     Route: 065
  58. SULFASALAZINE [Suspect]
     Active Substance: SULFASALAZINE
     Route: 065
  59. SULFASALAZINE [Suspect]
     Active Substance: SULFASALAZINE
     Indication: Rheumatoid arthritis
     Dosage: 4000 MILLIGRAM, QD
     Route: 065
  60. SULFASALAZINE [Suspect]
     Active Substance: SULFASALAZINE
     Dosage: 2000 MILLIGRAM, QD
     Route: 065
  61. SULFASALAZINE [Suspect]
     Active Substance: SULFASALAZINE
     Route: 048
  62. SULFASALAZINE [Suspect]
     Active Substance: SULFASALAZINE
     Route: 065
  63. SULFASALAZINE [Suspect]
     Active Substance: SULFASALAZINE
     Dosage: UNK UNK, 2X/DAY
     Route: 048
  64. SULFASALAZINE [Suspect]
     Active Substance: SULFASALAZINE
     Dosage: UNK UNK, 1X/DAY
     Route: 048
  65. SULFASALAZINE [Suspect]
     Active Substance: SULFASALAZINE
     Route: 048
  66. SULFASALAZINE [Suspect]
     Active Substance: SULFASALAZINE
     Dosage: 1000 MILLIGRAM, BID
     Route: 048
  67. SULFASALAZINE [Suspect]
     Active Substance: SULFASALAZINE
     Route: 048
  68. SULFASALAZINE [Suspect]
     Active Substance: SULFASALAZINE
     Route: 048
  69. CALCIUM CHLORIDE [Suspect]
     Active Substance: CALCIUM CHLORIDE
  70. ADALIMUMAB [Suspect]
     Active Substance: ADALIMUMAB
     Indication: Rheumatoid arthritis
     Route: 042
  71. ADALIMUMAB [Suspect]
     Active Substance: ADALIMUMAB
     Route: 058
  72. ADALIMUMAB [Suspect]
     Active Substance: ADALIMUMAB
     Route: 058
  73. ADALIMUMAB [Suspect]
     Active Substance: ADALIMUMAB
     Route: 048
  74. ADALIMUMAB [Suspect]
     Active Substance: ADALIMUMAB
     Route: 065
  75. RITUXIMAB [Suspect]
     Active Substance: RITUXIMAB
     Indication: Rheumatoid arthritis
     Route: 065
  76. RITUXIMAB [Suspect]
     Active Substance: RITUXIMAB
     Indication: Abdominal discomfort
     Route: 042
  77. RITUXIMAB [Suspect]
     Active Substance: RITUXIMAB
     Route: 048
  78. RITUXIMAB [Suspect]
     Active Substance: RITUXIMAB
     Route: 065
  79. RITUXIMAB [Suspect]
     Active Substance: RITUXIMAB
     Route: 058
  80. RITUXIMAB [Suspect]
     Active Substance: RITUXIMAB
     Route: 042
  81. RITUXIMAB [Suspect]
     Active Substance: RITUXIMAB
     Route: 042
  82. RITUXIMAB [Suspect]
     Active Substance: RITUXIMAB
     Route: 058
  83. TRUXIMA [Suspect]
     Active Substance: RITUXIMAB-ABBS
     Indication: Rheumatoid arthritis
     Route: 042
  84. TRUXIMA [Suspect]
     Active Substance: RITUXIMAB-ABBS
     Indication: Abdominal discomfort
     Route: 058
  85. ACETAMINOPHEN [Suspect]
     Active Substance: ACETAMINOPHEN
     Indication: Rheumatoid arthritis
     Route: 065
  86. ACETAMINOPHEN [Suspect]
     Active Substance: ACETAMINOPHEN
     Route: 048
  87. ACETAMINOPHEN [Suspect]
     Active Substance: ACETAMINOPHEN
     Route: 065
  88. ACETAMINOPHEN [Suspect]
     Active Substance: ACETAMINOPHEN
     Route: 016
  89. ACETAMINOPHEN [Suspect]
     Active Substance: ACETAMINOPHEN
     Route: 065
  90. ACETAMINOPHEN\CODEINE PHOSPHATE [Suspect]
     Active Substance: ACETAMINOPHEN\CODEINE PHOSPHATE
     Indication: Rheumatoid arthritis
     Route: 065
  91. OXYCODONE AND ACETAMINOPHEN [Suspect]
     Active Substance: ACETAMINOPHEN\OXYCODONE HYDROCHLORIDE
     Route: 065
  92. ACTEMRA [Suspect]
     Active Substance: TOCILIZUMAB
     Indication: Rheumatoid arthritis
     Route: 042
  93. ACTEMRA [Suspect]
     Active Substance: TOCILIZUMAB
     Route: 048
  94. ACTEMRA [Suspect]
     Active Substance: TOCILIZUMAB
     Dosage: 728.8 MG, MONTHLY
     Route: 042
  95. ACTEMRA [Suspect]
     Active Substance: TOCILIZUMAB
     Route: 042
  96. ACTEMRA [Suspect]
     Active Substance: TOCILIZUMAB
     Route: 058
  97. ACTEMRA [Suspect]
     Active Substance: TOCILIZUMAB
     Route: 042
  98. ACTEMRA [Suspect]
     Active Substance: TOCILIZUMAB
     Route: 042
  99. ACTEMRA [Suspect]
     Active Substance: TOCILIZUMAB
     Dosage: 752.8 MG, WEEKLY
     Route: 042
  100. ACTEMRA [Suspect]
     Active Substance: TOCILIZUMAB
     Route: 042
  101. ACTEMRA [Suspect]
     Active Substance: TOCILIZUMAB
     Route: 065
  102. ACTEMRA [Suspect]
     Active Substance: TOCILIZUMAB
     Route: 065
  103. ACTEMRA [Suspect]
     Active Substance: TOCILIZUMAB
     Route: 065
  104. ACTEMRA [Suspect]
     Active Substance: TOCILIZUMAB
     Route: 061
  105. ACTEMRA [Suspect]
     Active Substance: TOCILIZUMAB
     Route: 065
  106. ACTEMRA [Suspect]
     Active Substance: TOCILIZUMAB
     Route: 042
  107. ACTEMRA [Suspect]
     Active Substance: TOCILIZUMAB
     Route: 042
  108. ACTEMRA [Suspect]
     Active Substance: TOCILIZUMAB
     Route: 042
  109. ACTEMRA [Suspect]
     Active Substance: TOCILIZUMAB
     Dosage: 752 MILLIGRAM, QWK
     Route: 065
  110. ACTEMRA [Suspect]
     Active Substance: TOCILIZUMAB
     Route: 016
  111. ACTEMRA [Suspect]
     Active Substance: TOCILIZUMAB
     Route: 042
  112. ACTEMRA [Suspect]
     Active Substance: TOCILIZUMAB
     Route: 058
  113. ACTEMRA [Suspect]
     Active Substance: TOCILIZUMAB
     Route: 048
  114. ACTEMRA [Suspect]
     Active Substance: TOCILIZUMAB
     Route: 016
  115. ACTEMRA [Suspect]
     Active Substance: TOCILIZUMAB
     Route: 016
  116. ACTEMRA [Suspect]
     Active Substance: TOCILIZUMAB
     Route: 016
  117. ACTEMRA [Suspect]
     Active Substance: TOCILIZUMAB
     Route: 065
  118. ACTEMRA [Suspect]
     Active Substance: TOCILIZUMAB
     Route: 042
  119. ACTEMRA [Suspect]
     Active Substance: TOCILIZUMAB
     Route: 058
  120. ACTEMRA [Suspect]
     Active Substance: TOCILIZUMAB
     Route: 065
  121. ACTEMRA [Suspect]
     Active Substance: TOCILIZUMAB
     Route: 065
  122. ALENDRONATE SODIUM [Suspect]
     Active Substance: ALENDRONATE SODIUM
     Indication: Rheumatoid arthritis
     Route: 048
  123. ALENDRONATE SODIUM [Suspect]
     Active Substance: ALENDRONATE SODIUM
     Route: 065
  124. ALENDRONATE SODIUM [Suspect]
     Active Substance: ALENDRONATE SODIUM
     Route: 048
  125. DICLOFENAC SODIUM [Suspect]
     Active Substance: DICLOFENAC SODIUM
     Route: 065
  126. PREDNISONE [Suspect]
     Active Substance: PREDNISONE
     Indication: Rheumatoid arthritis
     Route: 065
  127. PREDNISONE [Suspect]
     Active Substance: PREDNISONE
     Indication: Systemic lupus erythematosus
     Route: 048
  128. PREDNISONE [Suspect]
     Active Substance: PREDNISONE
     Indication: Psoriatic arthropathy
     Route: 065
  129. PREDNISONE [Suspect]
     Active Substance: PREDNISONE
     Route: 042
  130. PREDNISONE [Suspect]
     Active Substance: PREDNISONE
     Route: 048
  131. PREDNISONE [Suspect]
     Active Substance: PREDNISONE
     Route: 048
  132. PREDNISONE [Suspect]
     Active Substance: PREDNISONE
     Route: 048
  133. PREDNISONE [Suspect]
     Active Substance: PREDNISONE
     Route: 065
  134. PREDNISONE [Suspect]
     Active Substance: PREDNISONE
     Route: 065
  135. PREDNISONE [Suspect]
     Active Substance: PREDNISONE
     Route: 065
  136. PREDNISONE [Suspect]
     Active Substance: PREDNISONE
     Route: 065
  137. PREDNISONE [Suspect]
     Active Substance: PREDNISONE
     Route: 065
  138. PREDNISONE [Suspect]
     Active Substance: PREDNISONE
     Route: 048
  139. PREDNISONE [Suspect]
     Active Substance: PREDNISONE
     Route: 048
  140. APREPITANT [Suspect]
     Active Substance: APREPITANT
     Route: 042
  141. APREPITANT [Suspect]
     Active Substance: APREPITANT
     Route: 048
  142. APREPITANT [Suspect]
     Active Substance: APREPITANT
     Route: 065
  143. APREPITANT [Suspect]
     Active Substance: APREPITANT
     Route: 042
  144. APREPITANT [Suspect]
     Active Substance: APREPITANT
     Route: 065
  145. ARAVA [Suspect]
     Active Substance: LEFLUNOMIDE
     Indication: Rheumatoid arthritis
     Route: 065
  146. ARAVA [Suspect]
     Active Substance: LEFLUNOMIDE
     Route: 065
  147. ARAVA [Suspect]
     Active Substance: LEFLUNOMIDE
     Route: 048
  148. ARAVA [Suspect]
     Active Substance: LEFLUNOMIDE
     Dosage: 20 MILLIGRAM, QD
     Route: 048
  149. ARAVA [Suspect]
     Active Substance: LEFLUNOMIDE
     Route: 048
  150. ARAVA [Suspect]
     Active Substance: LEFLUNOMIDE
     Route: 048
  151. ARAVA [Suspect]
     Active Substance: LEFLUNOMIDE
     Route: 048
  152. ASACOL [Suspect]
     Active Substance: MESALAMINE
     Indication: Rheumatoid arthritis
     Route: 065
  153. AVSOLA [Suspect]
     Active Substance: INFLIXIMAB-AXXQ
     Indication: Rheumatoid arthritis
     Route: 040
  154. CETIRIZINE [Suspect]
     Active Substance: CETIRIZINE HYDROCHLORIDE
     Indication: Rheumatoid arthritis
     Dosage: 10 MILLIGRAM, QD
     Route: 065
  155. CETIRIZINE [Suspect]
     Active Substance: CETIRIZINE HYDROCHLORIDE
     Route: 016
  156. CETIRIZINE [Suspect]
     Active Substance: CETIRIZINE HYDROCHLORIDE
     Route: 065
  157. CETIRIZINE [Suspect]
     Active Substance: CETIRIZINE HYDROCHLORIDE
     Route: 065
  158. CETIRIZINE [Suspect]
     Active Substance: CETIRIZINE HYDROCHLORIDE
     Route: 061
  159. CETIRIZINE [Suspect]
     Active Substance: CETIRIZINE HYDROCHLORIDE
     Route: 065
  160. CETIRIZINE [Suspect]
     Active Substance: CETIRIZINE HYDROCHLORIDE
     Route: 065
  161. CETIRIZINE [Suspect]
     Active Substance: CETIRIZINE HYDROCHLORIDE
     Dosage: 10 MG, 1X/DAY
     Route: 048
  162. CETIRIZINE [Suspect]
     Active Substance: CETIRIZINE HYDROCHLORIDE
     Route: 048
  163. CETIRIZINE [Suspect]
     Active Substance: CETIRIZINE HYDROCHLORIDE
     Route: 048
  164. CETIRIZINE [Suspect]
     Active Substance: CETIRIZINE HYDROCHLORIDE
     Route: 016
  165. CHLORAPREP [Suspect]
     Active Substance: CHLORHEXIDINE GLUCONATE\ISOPROPYL ALCOHOL
     Route: 061
  166. CHLORAPREP [Suspect]
     Active Substance: CHLORHEXIDINE GLUCONATE\ISOPROPYL ALCOHOL
     Route: 048
  167. CHLORHEXIDINE [Suspect]
     Active Substance: CHLORHEXIDINE
     Indication: Rheumatoid arthritis
     Route: 048
  168. CHLORHEXIDINE [Suspect]
     Active Substance: CHLORHEXIDINE
     Route: 061
  169. CHLORHEXIDINE [Suspect]
     Active Substance: CHLORHEXIDINE
     Route: 002
  170. CHLORHEXIDINE GLUCONATE [Suspect]
     Active Substance: CHLORHEXIDINE GLUCONATE
     Route: 061
  171. CHLORHEXIDINE GLUCONATE [Suspect]
     Active Substance: CHLORHEXIDINE GLUCONATE
     Route: 048
  172. CHLORHEXIDINE GLUCONATE [Suspect]
     Active Substance: CHLORHEXIDINE GLUCONATE
     Route: 002
  173. CHLORHEXIDINE GLUCONATE [Suspect]
     Active Substance: CHLORHEXIDINE GLUCONATE
     Route: 065
  174. CHLORHEXIDINE GLUCONATE [Suspect]
     Active Substance: CHLORHEXIDINE GLUCONATE
     Route: 065
  175. CHLORHEXIDINE GLUCONATE\ISOPROPYL ALCOHOL [Suspect]
     Active Substance: CHLORHEXIDINE GLUCONATE\ISOPROPYL ALCOHOL
     Route: 065
  176. CHOLECALCIFEROL [Suspect]
     Active Substance: CHOLECALCIFEROL
     Route: 065
  177. CIMZIA [Suspect]
     Active Substance: CERTOLIZUMAB PEGOL
     Indication: Rheumatoid arthritis
     Route: 058
  178. CIMZIA [Suspect]
     Active Substance: CERTOLIZUMAB PEGOL
     Route: 042
  179. CIMZIA [Suspect]
     Active Substance: CERTOLIZUMAB PEGOL
     Dosage: 1 DOSAGE FORM, QD
     Route: 058
  180. CIMZIA [Suspect]
     Active Substance: CERTOLIZUMAB PEGOL
     Route: 058
  181. CIMZIA [Suspect]
     Active Substance: CERTOLIZUMAB PEGOL
     Dosage: 2 DF, 1X/DAY
     Route: 058
  182. CIMZIA [Suspect]
     Active Substance: CERTOLIZUMAB PEGOL
     Route: 065
  183. CLIOQUINOL [Suspect]
     Active Substance: CLIOQUINOL
     Route: 065
  184. CORTISONE ACETATE [Suspect]
     Active Substance: CORTISONE ACETATE
     Indication: Rheumatoid arthritis
     Route: 061
  185. CORTISONE ACETATE [Suspect]
     Active Substance: CORTISONE ACETATE
     Route: 065
  186. CORTISONE ACETATE [Suspect]
     Active Substance: CORTISONE ACETATE
     Route: 058
  187. CORTISONE ACETATE [Suspect]
     Active Substance: CORTISONE ACETATE
     Route: 061
  188. CORTISONE ACETATE [Suspect]
     Active Substance: CORTISONE ACETATE
     Route: 065
  189. CORTISONE ACETATE [Suspect]
     Active Substance: CORTISONE ACETATE
     Route: 065
  190. DESOGESTREL AND ETHINYL ESTRADIOL [Suspect]
     Active Substance: DESOGESTREL\ETHINYL ESTRADIOL
     Route: 065
  191. DESOXIMETASONE [Suspect]
     Active Substance: DESOXIMETASONE
     Indication: Rheumatoid arthritis
     Route: 048
  192. DESOXIMETASONE [Suspect]
     Active Substance: DESOXIMETASONE
     Route: 058
  193. DESOXIMETASONE [Suspect]
     Active Substance: DESOXIMETASONE
     Route: 016
  194. DESOXIMETASONE [Suspect]
     Active Substance: DESOXIMETASONE
     Route: 065
  195. DESOXIMETASONE [Suspect]
     Active Substance: DESOXIMETASONE
     Route: 065
  196. DESOXIMETASONE [Suspect]
     Active Substance: DESOXIMETASONE
     Route: 065
  197. DESOXIMETASONE [Suspect]
     Active Substance: DESOXIMETASONE
     Route: 065
  198. DESOXIMETASONE [Suspect]
     Active Substance: DESOXIMETASONE
     Route: 065
  199. DESOXIMETASONE [Suspect]
     Active Substance: DESOXIMETASONE
     Route: 061
  200. DESOXIMETASONE [Suspect]
     Active Substance: DESOXIMETASONE
     Route: 065
  201. DICLOFENAC [Suspect]
     Active Substance: DICLOFENAC
     Route: 065
  202. DICLOFENAC [Suspect]
     Active Substance: DICLOFENAC
     Route: 048
  203. DICLOFENAC [Suspect]
     Active Substance: DICLOFENAC
     Route: 065
  204. DICLOFENAC POTASSIUM [Suspect]
     Active Substance: DICLOFENAC POTASSIUM
     Indication: Rheumatoid arthritis
     Route: 048
  205. DICLOFENAC POTASSIUM [Suspect]
     Active Substance: DICLOFENAC POTASSIUM
     Route: 065
  206. DICLOFENAC POTASSIUM [Suspect]
     Active Substance: DICLOFENAC POTASSIUM
     Dosage: 50 MILLIGRAM, QD
     Route: 065
  207. DICLOFENAC POTASSIUM [Suspect]
     Active Substance: DICLOFENAC POTASSIUM
     Route: 065
  208. DICLOFENAC POTASSIUM [Suspect]
     Active Substance: DICLOFENAC POTASSIUM
     Route: 065
  209. DICLOFENAC POTASSIUM [Suspect]
     Active Substance: DICLOFENAC POTASSIUM
     Route: 065
  210. DICLOFENAC POTASSIUM [Suspect]
     Active Substance: DICLOFENAC POTASSIUM
     Route: 065
  211. DICLOFENAC POTASSIUM [Suspect]
     Active Substance: DICLOFENAC POTASSIUM
     Route: 065
  212. DICLOFENAC POTASSIUM [Suspect]
     Active Substance: DICLOFENAC POTASSIUM
     Route: 065
  213. DICLOFENAC POTASSIUM [Suspect]
     Active Substance: DICLOFENAC POTASSIUM
     Route: 065
  214. DICLOFENAC POTASSIUM [Suspect]
     Active Substance: DICLOFENAC POTASSIUM
     Route: 065
  215. DICLOFENAC POTASSIUM [Suspect]
     Active Substance: DICLOFENAC POTASSIUM
     Route: 065
  216. DICLOFENAC POTASSIUM [Suspect]
     Active Substance: DICLOFENAC POTASSIUM
     Route: 065
  217. DILTIAZEM HYDROCHLORIDE [Suspect]
     Active Substance: DILTIAZEM HYDROCHLORIDE
     Indication: Rheumatoid arthritis
     Route: 065
  218. DIPHENHYDRAMINE HYDROCHLORIDE [Suspect]
     Active Substance: DIPHENHYDRAMINE HYDROCHLORIDE
     Indication: Rheumatoid arthritis
     Route: 065
  219. EMEND [Suspect]
     Active Substance: APREPITANT
     Indication: Rheumatoid arthritis
     Route: 065
  220. ENTYVIO [Suspect]
     Active Substance: VEDOLIZUMAB
     Route: 042
  221. ERELZI [Suspect]
     Active Substance: ETANERCEPT-SZZS
     Route: 065
  222. ERELZI [Suspect]
     Active Substance: ETANERCEPT-SZZS
     Route: 058
  223. ERELZI [Suspect]
     Active Substance: ETANERCEPT-SZZS
     Route: 058
  224. FLUMETHASONE PIVALATE [Suspect]
     Active Substance: FLUMETHASONE PIVALATE
     Indication: Rheumatoid arthritis
     Route: 065
  225. FOLIC ACID [Suspect]
     Active Substance: FOLIC ACID
     Indication: Rheumatoid arthritis
     Route: 065
  226. FOLIC ACID [Suspect]
     Active Substance: FOLIC ACID
     Route: 065
  227. FOLIC ACID [Suspect]
     Active Substance: FOLIC ACID
     Route: 048
  228. FOLIC ACID [Suspect]
     Active Substance: FOLIC ACID
     Route: 048
  229. FOLIC ACID [Suspect]
     Active Substance: FOLIC ACID
     Route: 065
  230. FOLIC ACID [Suspect]
     Active Substance: FOLIC ACID
     Route: 065
  231. FOLIC ACID [Suspect]
     Active Substance: FOLIC ACID
     Route: 065
  232. FOLIC ACID [Suspect]
     Active Substance: FOLIC ACID
     Route: 065
  233. FOLIC ACID [Suspect]
     Active Substance: FOLIC ACID
     Route: 065
  234. FOLIC ACID [Suspect]
     Active Substance: FOLIC ACID
     Route: 049
  235. FOLIC ACID [Suspect]
     Active Substance: FOLIC ACID
     Route: 065
  236. FOLIC ACID [Suspect]
     Active Substance: FOLIC ACID
     Route: 065
  237. FOLIC ACID [Suspect]
     Active Substance: FOLIC ACID
     Route: 058
  238. FOLIC ACID [Suspect]
     Active Substance: FOLIC ACID
     Route: 048
  239. FOLIC ACID [Suspect]
     Active Substance: FOLIC ACID
     Route: 065
  240. FOSAMAX [Suspect]
     Active Substance: ALENDRONATE SODIUM
     Indication: Rheumatoid arthritis
     Route: 048
  241. FOSAMAX [Suspect]
     Active Substance: ALENDRONATE SODIUM
     Route: 065
  242. GOLIMUMAB [Suspect]
     Active Substance: GOLIMUMAB
     Indication: Rheumatoid arthritis
     Route: 058
  243. GOLIMUMAB [Suspect]
     Active Substance: GOLIMUMAB
     Route: 065
  244. HUMIRA [Suspect]
     Active Substance: ADALIMUMAB
     Indication: Rheumatoid arthritis
     Route: 058
  245. HUMIRA [Suspect]
     Active Substance: ADALIMUMAB
     Route: 058
  246. HUMIRA [Suspect]
     Active Substance: ADALIMUMAB
     Route: 058
  247. HUMIRA [Suspect]
     Active Substance: ADALIMUMAB
     Route: 058
  248. HYDROXYCHLOROQUINE [Suspect]
     Active Substance: HYDROXYCHLOROQUINE
     Indication: Rheumatoid arthritis
     Route: 065
  249. HYDROXYCHLOROQUINE [Suspect]
     Active Substance: HYDROXYCHLOROQUINE
     Route: 048
  250. HYDROXYCHLOROQUINE [Suspect]
     Active Substance: HYDROXYCHLOROQUINE
     Dosage: 400 MG, 1X/DAY
     Route: 048
  251. HYDROXYCHLOROQUINE [Suspect]
     Active Substance: HYDROXYCHLOROQUINE
     Route: 058
  252. HYDROXYCHLOROQUINE [Suspect]
     Active Substance: HYDROXYCHLOROQUINE
     Dosage: 40 MG, 1X/DAY
     Route: 048
  253. HYDROXYCHLOROQUINE [Suspect]
     Active Substance: HYDROXYCHLOROQUINE
     Route: 048
  254. HYDROXYCHLOROQUINE [Suspect]
     Active Substance: HYDROXYCHLOROQUINE
     Route: 048
  255. HYDROXYCHLOROQUINE [Suspect]
     Active Substance: HYDROXYCHLOROQUINE
     Route: 058
  256. HYDROXYCHLOROQUINE SULFATE [Suspect]
     Active Substance: HYDROXYCHLOROQUINE SULFATE
     Indication: Rheumatoid arthritis
     Dosage: 400 MG, 1X/DAY
     Route: 048
  257. HYDROXYCHLOROQUINE SULFATE [Suspect]
     Active Substance: HYDROXYCHLOROQUINE SULFATE
     Route: 048
  258. HYDROXYCHLOROQUINE SULFATE [Suspect]
     Active Substance: HYDROXYCHLOROQUINE SULFATE
     Route: 065
  259. HYDROXYCHLOROQUINE SULFATE [Suspect]
     Active Substance: HYDROXYCHLOROQUINE SULFATE
     Route: 048
  260. HYDROXYCHLOROQUINE SULFATE [Suspect]
     Active Substance: HYDROXYCHLOROQUINE SULFATE
     Route: 048
  261. HYDROXYCHLOROQUINE SULFATE [Suspect]
     Active Substance: HYDROXYCHLOROQUINE SULFATE
     Dosage: 400 MG, 1X/DAY
     Route: 065
  262. HYDROXYCHLOROQUINE SULFATE [Suspect]
     Active Substance: HYDROXYCHLOROQUINE SULFATE
     Dosage: 40 MG
     Route: 065
  263. HYDROXYCHLOROQUINE SULFATE [Suspect]
     Active Substance: HYDROXYCHLOROQUINE SULFATE
     Route: 065
  264. HYDROXYCHLOROQUINE SULFATE [Suspect]
     Active Substance: HYDROXYCHLOROQUINE SULFATE
     Dosage: 400 MG, 1X/DAY
     Route: 065
  265. HYDROXYCHLOROQUINE SULFATE [Suspect]
     Active Substance: HYDROXYCHLOROQUINE SULFATE
     Dosage: 400 UNK
     Route: 065
  266. HYDROXYCHLOROQUINE SULFATE [Suspect]
     Active Substance: HYDROXYCHLOROQUINE SULFATE
     Dosage: 400 MG, 1X/DAY
     Route: 065
  267. HYDROXYCHLOROQUINE SULFATE [Suspect]
     Active Substance: HYDROXYCHLOROQUINE SULFATE
     Dosage: 420 UNK
     Route: 065
  268. HYDROXYCHLOROQUINE SULFATE [Suspect]
     Active Substance: HYDROXYCHLOROQUINE SULFATE
     Dosage: 1 DF
     Route: 065
  269. HYDROXYCHLOROQUINE SULFATE [Suspect]
     Active Substance: HYDROXYCHLOROQUINE SULFATE
     Route: 048
  270. HYDROXYCHLOROQUINE SULFATE [Suspect]
     Active Substance: HYDROXYCHLOROQUINE SULFATE
     Route: 048
  271. INDOMETHACIN [Suspect]
     Active Substance: INDOMETHACIN
     Route: 065
  272. ISOPROPYL ALCOHOL [Suspect]
     Active Substance: ISOPROPYL ALCOHOL
     Route: 065
  273. ISOPROPYL ALCOHOL [Suspect]
     Active Substance: ISOPROPYL ALCOHOL
     Route: 061
  274. ISOPROPYL ALCOHOL [Suspect]
     Active Substance: ISOPROPYL ALCOHOL
     Route: 061
  275. ISOPROPYL ALCOHOL [Suspect]
     Active Substance: ISOPROPYL ALCOHOL
     Route: 048
  276. ISOPROPYL ALCOHOL [Suspect]
     Active Substance: ISOPROPYL ALCOHOL
     Route: 065
  277. LANSOPRAZOLE [Suspect]
     Active Substance: LANSOPRAZOLE
     Indication: Rheumatoid arthritis
     Route: 065
  278. ZESTRIL [Suspect]
     Active Substance: LISINOPRIL
  279. LEFLUNOMIDE [Suspect]
     Active Substance: LEFLUNOMIDE
     Route: 065
  280. LEFLUNOMIDE [Suspect]
     Active Substance: LEFLUNOMIDE
     Route: 048
  281. LEFLUNOMIDE [Suspect]
     Active Substance: LEFLUNOMIDE
     Route: 048
  282. LEFLUNOMIDE [Suspect]
     Active Substance: LEFLUNOMIDE
     Route: 048
  283. NAPROXEN SODIUM [Suspect]
     Active Substance: NAPROXEN SODIUM
     Indication: Rheumatoid arthritis
     Dosage: 500 MG, 2X/DAY
     Route: 065
  284. NAPROXEN SODIUM [Suspect]
     Active Substance: NAPROXEN SODIUM
     Dosage: 1000 MG, 1X/DAY
     Route: 065
  285. NAPROXEN SODIUM [Suspect]
     Active Substance: NAPROXEN SODIUM
     Dosage: 1000 UNK
     Route: 065
  286. NAPROXEN SODIUM [Suspect]
     Active Substance: NAPROXEN SODIUM
     Dosage: 1000 UNK
     Route: 065
  287. ORENCIA [Suspect]
     Active Substance: ABATACEPT
     Indication: Rheumatoid arthritis
     Dosage: 125 MG, WEEKLY
     Route: 058
  288. ORENCIA [Suspect]
     Active Substance: ABATACEPT
     Route: 042
  289. ORENCIA [Suspect]
     Active Substance: ABATACEPT
     Dosage: UNK, WEEKLY
     Route: 042
  290. ORENCIA [Suspect]
     Active Substance: ABATACEPT
     Dosage: 125 MG, WEEKLY
     Route: 042
  291. ORENCIA [Suspect]
     Active Substance: ABATACEPT
     Dosage: 120 MG, WEEKLY
     Route: 042
  292. ORENCIA [Suspect]
     Active Substance: ABATACEPT
     Dosage: 17.857 MG, 1X/DAY
     Route: 042
  293. ORENCIA [Suspect]
     Active Substance: ABATACEPT
     Route: 058
  294. ORENCIA [Suspect]
     Active Substance: ABATACEPT
     Route: 065
  295. ORENCIA [Suspect]
     Active Substance: ABATACEPT
     Dosage: 18 MG, 1X/DAY
     Route: 058
  296. ORENCIA [Suspect]
     Active Substance: ABATACEPT
     Route: 058
  297. ORENCIA [Suspect]
     Active Substance: ABATACEPT
     Route: 058
  298. ORENCIA [Suspect]
     Active Substance: ABATACEPT
     Route: 065
  299. ORENCIA [Suspect]
     Active Substance: ABATACEPT
     Dosage: 17.88 MILLIGRAM, QD
     Route: 065
  300. ORENCIA [Suspect]
     Active Substance: ABATACEPT
     Dosage: 17.86 UNK
     Route: 065
  301. ORENCIA [Suspect]
     Active Substance: ABATACEPT
     Dosage: 18 MG
     Route: 065
  302. ORENCIA [Suspect]
     Active Substance: ABATACEPT
     Route: 042
  303. ORENCIA [Suspect]
     Active Substance: ABATACEPT
     Route: 065
  304. ORENCIA [Suspect]
     Active Substance: ABATACEPT
     Route: 058
  305. ORENCIA [Suspect]
     Active Substance: ABATACEPT
     Dosage: 125 MG, 1X/DAY
     Route: 058
  306. ORENCIA [Suspect]
     Active Substance: ABATACEPT
     Route: 067
  307. ORENCIA [Suspect]
     Active Substance: ABATACEPT
     Route: 042
  308. ORENCIA [Suspect]
     Active Substance: ABATACEPT
     Route: 042
  309. ORENCIA [Suspect]
     Active Substance: ABATACEPT
     Route: 065
  310. ORENCIA [Suspect]
     Active Substance: ABATACEPT
     Dosage: 17.857 MG
     Route: 042
  311. ORENCIA [Suspect]
     Active Substance: ABATACEPT
     Route: 058
  312. ORENCIA [Suspect]
     Active Substance: ABATACEPT
     Dosage: UNK, QWK
     Route: 065
  313. ORENCIA [Suspect]
     Active Substance: ABATACEPT
     Dosage: UNK
     Route: 058
  314. OXYCODONE [Suspect]
     Active Substance: OXYCODONE
     Route: 065
  315. OXYCODONE [Suspect]
     Active Substance: OXYCODONE
     Route: 065
  316. OTEZLA [Suspect]
     Active Substance: APREMILAST
     Route: 065
  317. OTEZLA [Suspect]
     Active Substance: APREMILAST
     Route: 065
  318. OTEZLA [Suspect]
     Active Substance: APREMILAST
     Dosage: 6 MG, 1X/DAY
     Route: 048
  319. OTEZLA [Suspect]
     Active Substance: APREMILAST
     Route: 048
  320. OTEZLA [Suspect]
     Active Substance: APREMILAST
     Dosage: 6 MG, 1X/DAY
     Route: 065
  321. OTEZLA [Suspect]
     Active Substance: APREMILAST
     Route: 048
  322. OXYCODONE HYDROCHLORIDE [Suspect]
     Active Substance: OXYCODONE HYDROCHLORIDE
     Route: 065
  323. OXYCODONE TEREPHTHALATE [Suspect]
     Active Substance: OXYCODONE TEREPHTHALATE
     Route: 065
  324. PANTOPRAZOLE SODIUM [Suspect]
     Active Substance: PANTOPRAZOLE SODIUM
     Route: 048
  325. PANTOPRAZOLE SODIUM [Suspect]
     Active Substance: PANTOPRAZOLE SODIUM
     Route: 065
  326. PARA-AMINOSALICYLIC ACID [Suspect]
     Active Substance: AMINOSALICYLIC ACID
     Route: 065
  327. PERIOGARD [Suspect]
     Active Substance: CHLORHEXIDINE GLUCONATE
     Route: 065
  328. PERIOGARD [Suspect]
     Active Substance: CHLORHEXIDINE GLUCONATE
     Route: 002
  329. PERIOGARD [Suspect]
     Active Substance: CHLORHEXIDINE GLUCONATE
     Route: 002
  330. PHTHALYLSULFATHIAZOLE [Suspect]
     Active Substance: PHTHALYLSULFATHIAZOLE
     Indication: Rheumatoid arthritis
     Route: 048
  331. PHTHALYLSULFATHIAZOLE [Suspect]
     Active Substance: PHTHALYLSULFATHIAZOLE
     Dosage: 2000 MG, 1X/DAY
     Route: 048
  332. PHTHALYLSULFATHIAZOLE [Suspect]
     Active Substance: PHTHALYLSULFATHIAZOLE
     Route: 048
  333. PHTHALYLSULFATHIAZOLE [Suspect]
     Active Substance: PHTHALYLSULFATHIAZOLE
     Dosage: UNK, 1X/DAY
     Route: 048
  334. PHTHALYLSULFATHIAZOLE [Suspect]
     Active Substance: PHTHALYLSULFATHIAZOLE
     Dosage: 1000 MG, 1X/DAY
     Route: 065
  335. PHTHALYLSULFATHIAZOLE [Suspect]
     Active Substance: PHTHALYLSULFATHIAZOLE
     Dosage: 400 MG, 1X/DAY
     Route: 065
  336. PHTHALYLSULFATHIAZOLE [Suspect]
     Active Substance: PHTHALYLSULFATHIAZOLE
     Dosage: 1000 MILLIGRAM, QD
     Route: 048
  337. PHTHALYLSULFATHIAZOLE [Suspect]
     Active Substance: PHTHALYLSULFATHIAZOLE
     Dosage: UNK UNK, QD
     Route: 016
  338. PHTHALYLSULFATHIAZOLE [Suspect]
     Active Substance: PHTHALYLSULFATHIAZOLE
     Dosage: 1000 MILLIGRAM, QDUNK
     Route: 048
  339. PHTHALYLSULFATHIAZOLE [Suspect]
     Active Substance: PHTHALYLSULFATHIAZOLE
     Dosage: 2000 MILLIGRAM, QD
     Route: 058
  340. PHTHALYLSULFATHIAZOLE [Suspect]
     Active Substance: PHTHALYLSULFATHIAZOLE
     Dosage: 2000 MG, 1X/DAY
     Route: 048
  341. PHTHALYLSULFATHIAZOLE [Suspect]
     Active Substance: PHTHALYLSULFATHIAZOLE
     Route: 048
  342. PHTHALYLSULFATHIAZOLE [Suspect]
     Active Substance: PHTHALYLSULFATHIAZOLE
     Route: 048
  343. PHTHALYLSULFATHIAZOLE [Suspect]
     Active Substance: PHTHALYLSULFATHIAZOLE
     Route: 065
  344. PHTHALYLSULFATHIAZOLE [Suspect]
     Active Substance: PHTHALYLSULFATHIAZOLE
     Route: 048
  345. PHTHALYLSULFATHIAZOLE [Suspect]
     Active Substance: PHTHALYLSULFATHIAZOLE
     Dosage: 1000 MG, 2X/DAY
     Route: 065
  346. PHTHALYLSULFATHIAZOLE [Suspect]
     Active Substance: PHTHALYLSULFATHIAZOLE
     Route: 042
  347. PHTHALYLSULFATHIAZOLE [Suspect]
     Active Substance: PHTHALYLSULFATHIAZOLE
     Route: 065
  348. PREDNISOLONE [Suspect]
     Active Substance: PREDNISOLONE
     Route: 065
  349. PREDNISOLONE [Suspect]
     Active Substance: PREDNISOLONE
     Route: 048
  350. PREDNISOLONE [Suspect]
     Active Substance: PREDNISOLONE
     Dosage: 7.5 MG, 1X/DAY
     Route: 048
  351. PREDNISOLONE [Suspect]
     Active Substance: PREDNISOLONE
     Route: 042
  352. DICLOFENAC [Suspect]
     Active Substance: DICLOFENAC
  353. PREGABALIN [Suspect]
     Active Substance: PREGABALIN
  354. PSEUDOEPHEDRINE [Suspect]
     Active Substance: PSEUDOEPHEDRINE
     Indication: Rheumatoid arthritis
     Route: 065
  355. PSEUDOEPHEDRINE HYDROCHLORIDE [Suspect]
     Active Substance: PSEUDOEPHEDRINE HYDROCHLORIDE
     Indication: Rheumatoid arthritis
     Route: 065
  356. PSEUDOEPHEDRINE HYDROCHLORIDE [Suspect]
     Active Substance: PSEUDOEPHEDRINE HYDROCHLORIDE
     Route: 065
  357. PSEUDOEPHEDRINE HYDROCHLORIDE [Suspect]
     Active Substance: PSEUDOEPHEDRINE HYDROCHLORIDE
     Route: 048
  358. PSEUDOEPHEDRINE\TRIPROLIDINE [Suspect]
     Active Substance: PSEUDOEPHEDRINE\TRIPROLIDINE
     Route: 065
  359. CETIRIZINE HYDROCHLORIDE\PSEUDOEPHEDRINE HYDROCHLORIDE [Suspect]
     Active Substance: CETIRIZINE HYDROCHLORIDE\PSEUDOEPHEDRINE HYDROCHLORIDE
     Indication: Rheumatoid arthritis
     Route: 065
  360. REMICADE [Suspect]
     Active Substance: INFLIXIMAB
     Indication: Rheumatoid arthritis
     Route: 042
  361. REMICADE [Suspect]
     Active Substance: INFLIXIMAB
     Indication: Psoriatic arthropathy
     Route: 065
  362. REMICADE [Suspect]
     Active Substance: INFLIXIMAB
     Indication: Psoriasis
     Route: 042
  363. REMICADE [Suspect]
     Active Substance: INFLIXIMAB
     Indication: Crohn^s disease
     Route: 065
  364. REMICADE [Suspect]
     Active Substance: INFLIXIMAB
     Indication: Ankylosing spondylitis
     Route: 065
  365. REMICADE [Suspect]
     Active Substance: INFLIXIMAB
     Indication: Arthropathy
     Route: 065
  366. REMICADE [Suspect]
     Active Substance: INFLIXIMAB
     Indication: Colitis ulcerative
     Route: 065
  367. REMICADE [Suspect]
     Active Substance: INFLIXIMAB
     Route: 042
  368. REMICADE [Suspect]
     Active Substance: INFLIXIMAB
     Route: 065
  369. REMICADE [Suspect]
     Active Substance: INFLIXIMAB
     Route: 065
  370. REMICADE [Suspect]
     Active Substance: INFLIXIMAB
     Route: 065
  371. REMICADE [Suspect]
     Active Substance: INFLIXIMAB
     Route: 065
  372. REMICADE [Suspect]
     Active Substance: INFLIXIMAB
     Route: 065
  373. REMICADE [Suspect]
     Active Substance: INFLIXIMAB
     Route: 065
  374. REMICADE [Suspect]
     Active Substance: INFLIXIMAB
     Route: 042
  375. CALCIUM GLUBIONATE [Suspect]
     Active Substance: CALCIUM GLUBIONATE
  376. CALCIUM GLUBIONATE [Suspect]
     Active Substance: CALCIUM GLUBIONATE
  377. CALCIUM GLUBIONATE [Suspect]
     Active Substance: CALCIUM GLUBIONATE
  378. SECUKINUMAB [Suspect]
     Active Substance: SECUKINUMAB
     Route: 065
  379. SIMPONI [Suspect]
     Active Substance: GOLIMUMAB
     Indication: Rheumatoid arthritis
     Route: 058
  380. STELARA [Suspect]
     Active Substance: USTEKINUMAB
     Indication: Rheumatoid arthritis
     Route: 058
  381. SULFAMETHOXAZOLE [Suspect]
     Active Substance: SULFAMETHOXAZOLE
     Indication: Rheumatoid arthritis
     Route: 065
  382. SULFAMETHOXAZOLE [Suspect]
     Active Substance: SULFAMETHOXAZOLE
     Route: 067
  383. APREMILAST [Suspect]
     Active Substance: APREMILAST
     Dosage: 6 MILLIGRAM, QD
     Route: 065
  384. APREMILAST [Suspect]
     Active Substance: APREMILAST
     Route: 048
  385. APREMILAST [Suspect]
     Active Substance: APREMILAST
     Route: 065
  386. APREMILAST [Suspect]
     Active Substance: APREMILAST
     Route: 042
  387. APREMILAST [Suspect]
     Active Substance: APREMILAST
     Route: 048
  388. APREMILAST [Suspect]
     Active Substance: APREMILAST
     Route: 065
  389. APREMILAST [Suspect]
     Active Substance: APREMILAST
     Route: 042
  390. AZATHIOPRINE [Suspect]
     Active Substance: AZATHIOPRINE
  391. ACETAMINOPHEN\IBUPROFEN [Suspect]
     Active Substance: ACETAMINOPHEN\IBUPROFEN
     Route: 065
  392. ACETAMINOPHEN\IBUPROFEN [Suspect]
     Active Substance: ACETAMINOPHEN\IBUPROFEN
     Route: 065
  393. CALCIUM CARBONATE [Suspect]
     Active Substance: CALCIUM CARBONATE
     Route: 016
  394. CALCIUM CARBONATE [Suspect]
     Active Substance: CALCIUM CARBONATE
     Route: 065
  395. CALCIUM CITRATE [Suspect]
     Active Substance: CALCIUM CITRATE
  396. CELEBREX [Suspect]
     Active Substance: CELECOXIB
     Route: 065
  397. ERYTHROMYCIN [Suspect]
     Active Substance: ERYTHROMYCIN
  398. HYALURONIDASE [Suspect]
     Active Substance: HYALURONIDASE
  399. MELOXICAM [Suspect]
     Active Substance: MELOXICAM
  400. PIROXICAM [Suspect]
     Active Substance: PIROXICAM
  401. SULFAMETHOXAZOLE AND TRIMETHOPRIM [Suspect]
     Active Substance: SULFAMETHOXAZOLE\TRIMETHOPRIM
     Route: 065
  402. SULFAMETHOXAZOLE AND TRIMETHOPRIM [Suspect]
     Active Substance: SULFAMETHOXAZOLE\TRIMETHOPRIM
     Route: 067
  403. ALBUTEROL [Suspect]
     Active Substance: ALBUTEROL
  404. TOCILIZUMAB [Suspect]
     Active Substance: TOCILIZUMAB
     Indication: Rheumatoid arthritis
     Route: 042
  405. TOPICORT [Suspect]
     Active Substance: DESOXIMETASONE
     Route: 058
  406. VITAMIN D3 [Suspect]
     Active Substance: CHOLECALCIFEROL
     Route: 065
  407. CETRIMIDE [Suspect]
     Active Substance: CETRIMIDE
  408. FOSAPREPITANT [Suspect]
     Active Substance: FOSAPREPITANT
  409. PREDNISONE [Suspect]
     Active Substance: PREDNISONE
  410. QUETIAPINE FUMARATE [Suspect]
     Active Substance: QUETIAPINE FUMARATE
     Route: 065
  411. VITAMIN C [Suspect]
     Active Substance: ASCORBIC ACID
     Route: 065
  412. CETIRIZINE HYDROCHLORIDE [Suspect]
     Active Substance: CETIRIZINE HYDROCHLORIDE
     Indication: Rheumatoid arthritis
     Route: 065
  413. CETIRIZINE HYDROCHLORIDE [Suspect]
     Active Substance: CETIRIZINE HYDROCHLORIDE
     Route: 065
  414. CETIRIZINE HYDROCHLORIDE [Suspect]
     Active Substance: CETIRIZINE HYDROCHLORIDE
     Route: 065
  415. CETIRIZINE HYDROCHLORIDE [Suspect]
     Active Substance: CETIRIZINE HYDROCHLORIDE
     Dosage: 10 MILLIGRAM, QD
     Route: 065
  416. CETIRIZINE HYDROCHLORIDE [Suspect]
     Active Substance: CETIRIZINE HYDROCHLORIDE
     Route: 048
  417. CETIRIZINE HYDROCHLORIDE [Suspect]
     Active Substance: CETIRIZINE HYDROCHLORIDE
     Route: 048
  418. CETIRIZINE HYDROCHLORIDE [Suspect]
     Active Substance: CETIRIZINE HYDROCHLORIDE
     Route: 016
  419. DOCONEXENT\ICOSAPENT [Suspect]
     Active Substance: DOCONEXENT\ICOSAPENT
  420. HYRIMOZ [Suspect]
     Active Substance: ADALIMUMAB-ADAZ
  421. LEFLUNOMIDE [Suspect]
     Active Substance: LEFLUNOMIDE
  422. CHLORHEXIDINE GLUCONATE\ISOPROPYL ALCOHOL [Suspect]
     Active Substance: CHLORHEXIDINE GLUCONATE\ISOPROPYL ALCOHOL
     Route: 065
  423. CHLORHEXIDINE GLUCONATE\ISOPROPYL ALCOHOL [Suspect]
     Active Substance: CHLORHEXIDINE GLUCONATE\ISOPROPYL ALCOHOL
     Route: 048
  424. CHLORHEXIDINE GLUCONATE\ISOPROPYL ALCOHOL [Suspect]
     Active Substance: CHLORHEXIDINE GLUCONATE\ISOPROPYL ALCOHOL
     Route: 061
  425. CHLORHEXIDINE GLUCONATE\ISOPROPYL ALCOHOL [Suspect]
     Active Substance: CHLORHEXIDINE GLUCONATE\ISOPROPYL ALCOHOL
     Route: 048
  426. PREVACID [Suspect]
     Active Substance: LANSOPRAZOLE
  427. PERCOCET [Suspect]
     Active Substance: ACETAMINOPHEN\OXYCODONE HYDROCHLORIDE
  428. FLUOROMETHOLONE [Suspect]
     Active Substance: FLUOROMETHOLONE
  429. FISH OIL [Concomitant]
     Active Substance: FISH OIL
     Route: 065
  430. CAFFEINE [Concomitant]
     Active Substance: CAFFEINE
  431. PANTOPRAZOLE [Concomitant]
     Active Substance: PANTOPRAZOLE
  432. CALCIUM GLUCONATE [Concomitant]
     Active Substance: CALCIUM GLUCONATE
     Route: 065
  433. ERGOCALCIFEROL [Concomitant]
     Active Substance: ERGOCALCIFEROL
     Route: 065
  434. ERYTHROMYCIN [Concomitant]
     Active Substance: ERYTHROMYCIN
  435. GLUCOSAMINE [Concomitant]
     Active Substance: GLUCOSAMINE
     Route: 065
  436. IBUPROFEN [Concomitant]
     Active Substance: IBUPROFEN
     Route: 065
  437. LEVOTHYROXINE SODIUM [Concomitant]
     Active Substance: LEVOTHYROXINE SODIUM
  438. LISINOPRIL [Concomitant]
     Active Substance: LISINOPRIL
  439. LORAZEPAM [Concomitant]
     Active Substance: LORAZEPAM
     Route: 065
  440. MAGNESIUM [Concomitant]
     Active Substance: MAGNESIUM
  441. MELOXICAM [Concomitant]
     Active Substance: MELOXICAM
  442. MORPHINE [Concomitant]
     Active Substance: MORPHINE
  443. PIROXICAM [Concomitant]
     Active Substance: PIROXICAM
  444. CETIRIZINE HYDROCHLORIDE [Concomitant]
     Active Substance: CETIRIZINE HYDROCHLORIDE
     Route: 065
  445. RISEDRONATE SODIUM [Concomitant]
     Active Substance: RISEDRONATE SODIUM
  446. ALBUTEROL [Concomitant]
     Active Substance: ALBUTEROL
  447. TYLENOL [Concomitant]
     Active Substance: ACETAMINOPHEN
     Route: 065
  448. TYLENOL WITH CODEINE [Concomitant]
     Active Substance: ACETAMINOPHEN\CODEINE PHOSPHATE
     Route: 065
  449. ZOPICLONE [Concomitant]
     Active Substance: ZOPICLONE
     Route: 065
  450. CODEINE PHOSPHATE [Concomitant]
     Active Substance: CODEINE PHOSPHATE
  451. DILTIAZEM HYDROCHLORIDE [Concomitant]
     Active Substance: DILTIAZEM HYDROCHLORIDE

REACTIONS (76)
  - Adjustment disorder with depressed mood [Fatal]
  - Alopecia [Fatal]
  - Amnesia [Fatal]
  - Blister [Fatal]
  - Breast cancer stage III [Fatal]
  - Bursitis [Fatal]
  - Colitis ulcerative [Fatal]
  - Confusional state [Fatal]
  - Contusion [Fatal]
  - Decreased appetite [Fatal]
  - Deep vein thrombosis [Fatal]
  - Delirium [Fatal]
  - Depression [Fatal]
  - Dislocation of vertebra [Fatal]
  - Dizziness [Fatal]
  - Drug hypersensitivity [Fatal]
  - Dry mouth [Fatal]
  - Duodenal ulcer perforation [Fatal]
  - Dyspnoea [Fatal]
  - Facet joint syndrome [Fatal]
  - Feeling hot [Fatal]
  - Fatigue [Fatal]
  - Fibromyalgia [Fatal]
  - Folliculitis [Fatal]
  - General physical health deterioration [Fatal]
  - Glossodynia [Fatal]
  - Hand deformity [Fatal]
  - Headache [Fatal]
  - Helicobacter infection [Fatal]
  - Hypertension [Fatal]
  - Infusion related reaction [Fatal]
  - Lip dry [Fatal]
  - Lower respiratory tract infection [Fatal]
  - Maternal exposure during pregnancy [Fatal]
  - Medication error [Fatal]
  - Muscle injury [Fatal]
  - Night sweats [Fatal]
  - Obesity [Fatal]
  - Osteoarthritis [Fatal]
  - Pain [Fatal]
  - Pemphigus [Fatal]
  - Pericarditis [Fatal]
  - Peripheral venous disease [Fatal]
  - Porphyria acute [Fatal]
  - Prescribed overdose [Fatal]
  - Upper respiratory tract infection [Fatal]
  - Stomatitis [Fatal]
  - Systemic lupus erythematosus [Fatal]
  - Type 2 diabetes mellitus [Fatal]
  - Weight fluctuation [Fatal]
  - Wound infection [Fatal]
  - Sleep disorder due to general medical condition, insomnia type [Fatal]
  - Treatment failure [Fatal]
  - Treatment noncompliance [Fatal]
  - Anxiety [Fatal]
  - Arthritis [Fatal]
  - Autoimmune disorder [Fatal]
  - Bronchitis [Fatal]
  - Crohn^s disease [Fatal]
  - Drug-induced liver injury [Fatal]
  - Ear infection [Fatal]
  - Exostosis [Fatal]
  - Foot deformity [Fatal]
  - Hepatic cirrhosis [Fatal]
  - Hip arthroplasty [Fatal]
  - Hypercholesterolaemia [Fatal]
  - Hypoaesthesia [Fatal]
  - Joint dislocation [Fatal]
  - Knee arthroplasty [Fatal]
  - Laryngitis [Fatal]
  - Loss of personal independence in daily activities [Fatal]
  - Lower limb fracture [Fatal]
  - Lupus vulgaris [Fatal]
  - Memory impairment [Fatal]
  - Condition aggravated [Fatal]
  - Off label use [Unknown]
